FAERS Safety Report 6883679-4 (Version None)
Quarter: 2010Q3

REPORT INFORMATION
  Report Type: 
  Country: None (occurrence: None)
  Receive Date: 20100729
  Receipt Date: 20100720
  Transmission Date: 20110219
  Serious: Yes (Hospitalization)
  Sender: FDA-Public Use
  Company Number: A0867103A

PATIENT
  Age: 81 Year
  Sex: Female
  Weight: 87.3 kg

DRUGS (5)
  1. AVANDIA [Suspect]
     Dosage: 4MG PER DAY
     Dates: start: 20020101, end: 20030925
  2. GLYBURIDE [Concomitant]
     Dates: end: 20030901
  3. COREG [Concomitant]
  4. VASOTEC [Concomitant]
  5. AZMACORT [Concomitant]

REACTIONS (1)
  - MYOCARDIAL INFARCTION [None]
